FAERS Safety Report 25478182 (Version 1)
Quarter: 2025Q2

REPORT INFORMATION
  Report Type: Spontaneous
  Country: DE (occurrence: DE)
  Receive Date: 20250625
  Receipt Date: 20250625
  Transmission Date: 20250717
  Serious: Yes (Other)
  Sender: AUROBINDO
  Company Number: DE-STADA-01400380

PATIENT
  Age: 28 Year
  Sex: Male

DRUGS (5)
  1. DIMETHYL FUMARATE [Suspect]
     Active Substance: DIMETHYL FUMARATE
     Indication: Dermatitis psoriasiform
     Dosage: 30 MILLIGRAM, ONCE A DAY, IN WEEK ONE, 30 MILLIGRAM, EVERY WEEK, 30 MG (1-0-1) IN WEEK TWO AND 30 MG
     Route: 065
     Dates: start: 202110, end: 202204
  2. DIMETHYL FUMARATE [Suspect]
     Active Substance: DIMETHYL FUMARATE
     Dosage: 120 MILLIGRAM, FOUR TIMES/DAY
     Route: 065
     Dates: end: 202204
  3. VITAMIN A [Suspect]
     Active Substance: VITAMIN A
     Indication: Dermatitis psoriasiform
     Route: 061
  4. VITAMIN D3 [Concomitant]
     Active Substance: CHOLECALCIFEROL
     Indication: Dermatitis psoriasiform
     Route: 061
  5. IXEKIZUMAB [Concomitant]
     Active Substance: IXEKIZUMAB
     Indication: Psoriasis
     Dosage: 80 MILLIGRAM, TWO TIMES A DAY
     Route: 065
     Dates: start: 20230419

REACTIONS (3)
  - Gastrointestinal disorder [Unknown]
  - Drug ineffective [Unknown]
  - Off label use [Unknown]
